FAERS Safety Report 5031543-8 (Version None)
Quarter: 2006Q2

REPORT INFORMATION
  Report Type: 
  Country: None (occurrence: None)
  Receive Date: 20060616
  Receipt Date: 20060606
  Transmission Date: 20061013
  Serious: Yes (Death)
  Sender: FDA-Public Use
  Company Number: 2006-BP-06512RO

PATIENT
  Age: 76 Year
  Sex: Male
  Weight: 77 kg

DRUGS (3)
  1. MIRTAZAPINE [Suspect]
     Dosage: PO
     Route: 048
  2. ZOLOFT [Suspect]
     Indication: DEPRESSION
     Dosage: (50 MG), PO
     Route: 048
  3. AMITRIPTYLINE HCL [Suspect]
     Dosage: PO
     Route: 048

REACTIONS (8)
  - ARTERIOSCLEROSIS [None]
  - CARDIOMEGALY [None]
  - COMPLETED SUICIDE [None]
  - DRUG ABUSER [None]
  - DRUG TOXICITY [None]
  - MULTIPLE DRUG OVERDOSE INTENTIONAL [None]
  - PULMONARY CONGESTION [None]
  - PULMONARY OEDEMA [None]
